FAERS Safety Report 17615107 (Version 1)
Quarter: 2020Q1

REPORT INFORMATION
  Report Type: Spontaneous
  Country: US (occurrence: US)
  Receive Date: 20200330
  Receipt Date: 20200330
  Transmission Date: 20200409
  Serious: No
  Sender: FDA-Public Use
  Company Number: None

PATIENT
  Sex: Male

DRUGS (13)
  1. AMLODIPINE [Concomitant]
     Active Substance: AMLODIPINE BESYLATE
  2. DYMISTA [Concomitant]
     Active Substance: AZELASTINE HYDROCHLORIDE\FLUTICASONE PROPIONATE
  3. SUCRALFATE. [Concomitant]
     Active Substance: SUCRALFATE
  4. TREMFYA [Suspect]
     Active Substance: GUSELKUMAB
     Indication: PSORIASIS
     Dosage: ?          OTHER FREQUENCY: 1 SYR EVERY 8 WEEKS;?
     Route: 058
     Dates: start: 20180503
  5. XARELTO [Concomitant]
     Active Substance: RIVAROXABAN
  6. CALCITRATE [Concomitant]
     Active Substance: CALCIUM CITRATE
  7. DILTIAZEM. [Concomitant]
     Active Substance: DILTIAZEM
  8. LISINOPRIL. [Concomitant]
     Active Substance: LISINOPRIL
  9. METHIMAZOLE. [Concomitant]
     Active Substance: METHIMAZOLE
  10. PANTOPRAZOLE [Concomitant]
     Active Substance: PANTOPRAZOLE
  11. AMOXICILLIN. [Concomitant]
     Active Substance: AMOXICILLIN
  12. LISINOPRIL AND HYDROCHLOROTHIAZIDE [Concomitant]
     Active Substance: HYDROCHLOROTHIAZIDE\LISINOPRIL
  13. SOTALOL HCL [Concomitant]
     Active Substance: SOTALOL

REACTIONS (1)
  - Cardiac ablation [None]
